FAERS Safety Report 18142175 (Version 2)
Quarter: 2020Q4

REPORT INFORMATION
  Report Type: Report from Study
  Country: GB (occurrence: GB)
  Receive Date: 20200812
  Receipt Date: 20201001
  Transmission Date: 20210113
  Serious: Yes (Other)
  Sender: FDA-Public Use
  Company Number: GB-MYLANLABS-2020M1070122

PATIENT
  Sex: Female

DRUGS (24)
  1. OMEPRAZOLE. [Concomitant]
     Active Substance: OMEPRAZOLE
     Dosage: EVERY OTHER DAY
     Route: 048
     Dates: start: 20151229, end: 20170831
  2. CALCICHEW [Concomitant]
     Active Substance: CALCIUM CARBONATE
     Dosage: 1.25 GRAM, QD
     Route: 048
     Dates: start: 20151020, end: 20170831
  3. TRASTUZUMAB. [Suspect]
     Active Substance: TRASTUZUMAB
     Dosage: 600 MILLIGRAM, MONTHLY
     Route: 058
     Dates: start: 20160524, end: 20160526
  4. CETIRIZINE HYDROCHLORIDE. [Concomitant]
     Active Substance: CETIRIZINE HYDROCHLORIDE
     Dosage: 10 MILLIGRAM, QD
     Route: 048
     Dates: start: 20160602, end: 20160630
  5. DENOSUMAB [Concomitant]
     Active Substance: DENOSUMAB
     Dosage: OTHERS
     Route: 058
     Dates: start: 20151019, end: 20170831
  6. DEXAMETHASONE. [Concomitant]
     Active Substance: DEXAMETHASONE
     Dosage: OTHER
     Route: 048
     Dates: start: 20160602, end: 20170524
  7. VINORELBINE [Suspect]
     Active Substance: VINORELBINE TARTRATE
     Indication: BREAST CANCER
     Dosage: OTHERS
     Route: 048
     Dates: start: 20160324, end: 20160512
  8. ERIBULIN [Suspect]
     Active Substance: ERIBULIN
     Indication: BREAST CANCER
     Dosage: 1.8 GRAM, Q3W
     Route: 042
     Dates: start: 20160602, end: 20170316
  9. ENZALUTAMIDE [Suspect]
     Active Substance: ENZALUTAMIDE
     Indication: BREAST CANCER
     Dosage: 160 MILLIGRAM, QD
     Route: 048
     Dates: start: 20151113, end: 20160226
  10. ORAMORPH [Concomitant]
     Active Substance: MORPHINE SULFATE
     Dosage: AS NEEDED
     Route: 048
     Dates: start: 20150920, end: 20170831
  11. DIFFLAM MOUTH [Concomitant]
     Dosage: UNK UNK, BID
     Route: 061
     Dates: start: 20151113, end: 2015
  12. METOCLOPRAMIDE. [Concomitant]
     Active Substance: METOCLOPRAMIDE
     Dosage: 10 MG, 0.66 PER DAY
     Route: 048
     Dates: end: 20170831
  13. ADCAL D3 [Concomitant]
     Active Substance: CALCIUM CARBONATE\CHOLECALCIFEROL
     Indication: METASTASES TO BONE
     Dosage: 1500 MILLIGRAM, QD
     Route: 048
     Dates: start: 20151113, end: 2017
  14. DENOSUMAB [Concomitant]
     Active Substance: DENOSUMAB
     Dosage: UNK UNK, UNKNOWN FREQ.
     Route: 065
     Dates: start: 201510, end: 20170105
  15. VITAMIN D3 [Concomitant]
     Active Substance: CHOLECALCIFEROL
     Indication: PRODUCT USED FOR UNKNOWN INDICATION
     Dosage: UNK
     Route: 048
     Dates: start: 20151019, end: 201611
  16. THYROXINE [Concomitant]
     Active Substance: LEVOTHYROXINE
     Dosage: 100 MICROGRAM, QD
     Route: 048
     Dates: start: 1995, end: 20170831
  17. DENOSUMAB [Concomitant]
     Active Substance: DENOSUMAB
     Indication: METASTASES TO BONE
     Dosage: OTHERS
     Route: 058
     Dates: start: 201510, end: 20170105
  18. CALCICHEW D3 FORTE [Concomitant]
     Active Substance: CALCIUM\CHOLECALCIFEROL
     Dosage: UNK, BID
     Route: 048
     Dates: start: 20160721, end: 20160804
  19. TRASTUZUMAB. [Suspect]
     Active Substance: TRASTUZUMAB
     Indication: BREAST CANCER
     Dosage: 600 MILLIGRAM, Q3W
     Route: 058
     Dates: start: 20151113, end: 20160225
  20. TRASTUZUMAB EMTANSINE [Suspect]
     Active Substance: ADO-TRASTUZUMAB EMTANSINE
     Indication: BREAST CANCER
     Dosage: 240 MILLIGRAM, Q3W
     Route: 042
     Dates: start: 20150508, end: 20150911
  21. BENZYDAMINE [Concomitant]
     Active Substance: BENZYDAMINE
     Dosage: 0.25 PER DAY
     Dates: start: 20160602, end: 20160609
  22. AMITRIPTYLINE [Concomitant]
     Active Substance: AMITRIPTYLINE
     Dosage: OTHER
     Route: 048
     Dates: start: 201504, end: 2015
  23. COCODAMOL [Concomitant]
     Active Substance: ACETAMINOPHEN\CODEINE PHOSPHATE
     Dosage: 0.02 PER DAY, 530 TABLET
     Route: 048
     Dates: start: 201504, end: 20170831
  24. DENOSUMAB [Concomitant]
     Active Substance: DENOSUMAB
     Indication: PRODUCT USED FOR UNKNOWN INDICATION
     Dosage: UNK UNK, UNKNOWN FREQ.
     Route: 065
     Dates: start: 20151019, end: 20170831

REACTIONS (2)
  - Pulmonary embolism [Recovered/Resolved]
  - Muscle spasms [Recovered/Resolved]

NARRATIVE: CASE EVENT DATE: 2016
